FAERS Safety Report 6664355-X (Version None)
Quarter: 2010Q2

REPORT INFORMATION
  Report Type: 
  Country: None (occurrence: None)
  Receive Date: 20100401
  Receipt Date: 20100325
  Transmission Date: 20101027
  Serious: Yes (Hospitalization, Other)
  Sender: FDA-Public Use
  Company Number: PHHY2010GB18729

PATIENT

DRUGS (6)
  1. ENTACAPONE [Suspect]
     Indication: ON AND OFF PHENOMENON
     Dosage: UNK
  2. L-DOPA [Suspect]
     Indication: PARKINSON'S DISEASE
     Dosage: 300 MG, DAILY
  3. L-DOPA [Suspect]
     Dosage: 1,200 MG, DAILY
  4. CABERGOLINE [Concomitant]
     Dosage: 04 MG, DAILY
  5. PERGOLIDE [Concomitant]
     Dosage: 3.5 MG, DAILY
  6. ROPINIROLE [Concomitant]
     Dosage: 32 MG, DAILY

REACTIONS (7)
  - DYSKINESIA [None]
  - HALLUCINATION [None]
  - HYPOMANIA [None]
  - INTENTIONAL SELF-INJURY [None]
  - PERSECUTORY DELUSION [None]
  - STEREOTYPY [None]
  - SUICIDAL BEHAVIOUR [None]
